FAERS Safety Report 18935929 (Version 2)
Quarter: 2021Q2

REPORT INFORMATION
  Report Type: Report from Study
  Country: FR (occurrence: FR)
  Receive Date: 20210224
  Receipt Date: 20210413
  Transmission Date: 20210717
  Serious: Yes (Death, Hospitalization)
  Sender: FDA-Public Use
  Company Number: FR-PFIZER INC-2021160163

PATIENT
  Age: 61 Year
  Sex: Male
  Weight: 47 kg

DRUGS (6)
  1. FLUOROURACIL. [Suspect]
     Active Substance: FLUOROURACIL
     Dosage: 600 MG, CYCLIC (EVERY 5 MONTHS)
     Route: 040
     Dates: start: 20170103, end: 20170321
  2. CETUXIMAB. [Suspect]
     Active Substance: CETUXIMAB
     Indication: COLORECTAL CANCER METASTATIC
     Dosage: 750 MG
     Route: 042
     Dates: end: 20170321
  3. CETUXIMAB. [Suspect]
     Active Substance: CETUXIMAB
     Dosage: 770 MG, 2X/MONTH
     Route: 042
     Dates: start: 20170103
  4. OXALIPLATIN. [Suspect]
     Active Substance: OXALIPLATIN
     Indication: COLORECTAL CANCER METASTATIC
     Dosage: UNK
  5. FLUOROURACIL. [Suspect]
     Active Substance: FLUOROURACIL
     Indication: COLORECTAL CANCER METASTATIC
     Dosage: 3500 MG, CYCLIC (EVERY 5 MONTHS; OVER 48 HOURS)
     Route: 042
     Dates: start: 20170103, end: 20170323
  6. IRINOTECAN HCL [Suspect]
     Active Substance: IRINOTECAN HYDROCHLORIDE
     Indication: COLORECTAL CANCER METASTATIC
     Dosage: 210 MG, CYCLIC (EVERY 5 MONTHS)
     Route: 042
     Dates: start: 20170103, end: 20170321

REACTIONS (2)
  - Sudden death [Fatal]
  - Asthenia [Not Recovered/Not Resolved]

NARRATIVE: CASE EVENT DATE: 20170331
